FAERS Safety Report 24685394 (Version 1)
Quarter: 2024Q4

REPORT INFORMATION
  Report Type: Spontaneous
  Country: FR (occurrence: FR)
  Receive Date: 20241202
  Receipt Date: 20241202
  Transmission Date: 20250115
  Serious: Yes (Hospitalization, Other)
  Sender: BAXTER
  Company Number: None

PATIENT
  Age: 75 Year
  Sex: Male
  Weight: 104 kg

DRUGS (7)
  1. DOXORUBICIN HYDROCHLORIDE [Suspect]
     Active Substance: DOXORUBICIN HYDROCHLORIDE
     Indication: Diffuse large B-cell lymphoma
     Dosage: 72 MG, 1 CYCLICAL (C1)
     Route: 041
     Dates: start: 20241017, end: 20241017
  2. NAVELBINE [Suspect]
     Active Substance: VINORELBINE TARTRATE
     Indication: Diffuse large B-cell lymphoma
     Dosage: 120 MG, 1 CYCLICAL, (C1)
     Route: 041
     Dates: start: 20241017, end: 20241017
  3. GEMCITABINE HYDROCHLORIDE [Suspect]
     Active Substance: GEMCITABINE HYDROCHLORIDE
     Indication: Diffuse large B-cell lymphoma
     Dosage: 2400 MG, 1 CYCLICAL (C1)
     Route: 041
     Dates: start: 20241017, end: 20241017
  4. ONDANSETRON [Concomitant]
     Active Substance: ONDANSETRON
     Indication: B-cell lymphoma
     Dosage: 8 MG, 1 CYCLICAL
     Route: 041
     Dates: start: 20241017, end: 20241017
  5. RITUXIMAB [Concomitant]
     Active Substance: RITUXIMAB
     Indication: Diffuse large B-cell lymphoma
     Dosage: 900 MG, 1 CYCLICAL (C9)
     Route: 041
     Dates: start: 20241017, end: 20241017
  6. METHYLPREDNISOLONE [Concomitant]
     Active Substance: METHYLPREDNISOLONE
     Indication: Prophylaxis
     Dosage: 140 MG, 1 CYCLICAL
     Route: 041
     Dates: start: 20241017, end: 20241017
  7. POLARAMINE [Concomitant]
     Active Substance: DEXCHLORPHENIRAMINE MALEATE
     Indication: Prophylaxis
     Dosage: 10 MG, 1 CYCLICAL
     Route: 041
     Dates: start: 20241017, end: 20241017

REACTIONS (1)
  - Arteriospasm coronary [Recovered/Resolved]

NARRATIVE: CASE EVENT DATE: 20241017
